FAERS Safety Report 9060536 (Version 1)
Quarter: 2013Q1

REPORT INFORMATION
  Report Type: Other
  Country: NO (occurrence: NO)
  Receive Date: 20130212
  Receipt Date: 20130212
  Transmission Date: 20140127
  Serious: Yes (Other)
  Sender: FDA-Public Use
  Company Number: NO-NICOBRDEVP-2013-02221

PATIENT
  Sex: 0

DRUGS (2)
  1. GABAPENTIN (UNKNOWN) [Suspect]
     Indication: PRODUCT USED FOR UNKNOWN INDICATION
     Dosage: UNK
     Route: 065
  2. METOPROLOL [Suspect]
     Indication: PRODUCT USED FOR UNKNOWN INDICATION
     Dosage: UNK
     Route: 065

REACTIONS (16)
  - Chronic obstructive pulmonary disease [Recovered/Resolved]
  - Intermittent claudication [Recovered/Resolved]
  - Diplopia [Recovered/Resolved]
  - Dysarthria [Recovered/Resolved]
  - Dyspnoea [Recovered/Resolved]
  - Haemorrhage [Recovered/Resolved]
  - Muscular weakness [Recovered/Resolved]
  - Myasthenia gravis [Recovered/Resolved]
  - Myocardial infarction [Recovered/Resolved]
  - Pneumothorax [Recovered/Resolved]
  - Eyelid ptosis [Recovered/Resolved]
  - PCO2 increased [Recovered/Resolved]
  - General physical health deterioration [Recovered/Resolved]
  - Thymoma [Recovered/Resolved]
  - Thymus enlargement [Recovered/Resolved]
  - Pneumonia [Recovered/Resolved]
